FAERS Safety Report 6655335-9 (Version None)
Quarter: 2010Q1

REPORT INFORMATION
  Report Type: 
  Country: None (occurrence: None)
  Receive Date: 20100329
  Receipt Date: 20100316
  Transmission Date: 20100710
  Serious: Yes (Hospitalization)
  Sender: FDA-Public Use
  Company Number: PHHY2010GB16922

PATIENT

DRUGS (1)
  1. NEORAL [Suspect]

REACTIONS (2)
  - MEMORY IMPAIRMENT [None]
  - TREATMENT NONCOMPLIANCE [None]
